FAERS Safety Report 7775910-8 (Version None)
Quarter: 2011Q3

REPORT INFORMATION
  Report Type: 
  Country: None (occurrence: None)
  Receive Date: 20110923
  Receipt Date: 20110919
  Transmission Date: 20111222
  Serious: Yes (Other)
  Sender: FDA-Public Use
  Company Number: CN-ASTRAZENECA-2011SE55971

PATIENT
  Sex: Female

DRUGS (2)
  1. ROPIVACAINE HYDROCHLORIDE [Suspect]
     Indication: ANALGESIC THERAPY
     Route: 065
  2. FENTANYL [Suspect]
     Indication: ANALGESIC THERAPY
     Dosage: 3-5 UG/ML

REACTIONS (1)
  - RESPIRATORY DEPRESSION [None]
